FAERS Safety Report 14705128 (Version 1)
Quarter: 2018Q2

REPORT INFORMATION
  Report Type: Spontaneous
  Country: US (occurrence: US)
  Receive Date: 20180402
  Receipt Date: 20180402
  Transmission Date: 20180711
  Serious: Yes (Death, Hospitalization)
  Sender: FDA-Public Use
  Company Number: US-BAYER-2018-000368

PATIENT
  Age: 69 Year
  Sex: Female

DRUGS (4)
  1. XARELTO [Suspect]
     Active Substance: RIVAROXABAN
     Indication: CEREBROVASCULAR ACCIDENT PROPHYLAXIS
  2. XARELTO [Suspect]
     Active Substance: RIVAROXABAN
     Indication: ATRIAL FIBRILLATION
     Dosage: 15 MG, UNK
     Route: 048
     Dates: start: 20151215, end: 20160103
  3. XARELTO [Suspect]
     Active Substance: RIVAROXABAN
     Indication: THROMBOSIS PROPHYLAXIS
  4. BAYER LOW DOSE [Suspect]
     Active Substance: ASPIRIN
     Indication: PRODUCT USED FOR UNKNOWN INDICATION
     Dosage: 81 MG, UNK
     Route: 048

REACTIONS (5)
  - Melaena [Recovering/Resolving]
  - Abdominal hernia [Fatal]
  - Right ventricular failure [Fatal]
  - Tricuspid valve incompetence [Fatal]
  - Incarcerated hernia [Fatal]

NARRATIVE: CASE EVENT DATE: 201512
